FAERS Safety Report 21581259 (Version 3)
Quarter: 2022Q4

REPORT INFORMATION
  Report Type: Spontaneous
  Country: AR (occurrence: AR)
  Receive Date: 20221111
  Receipt Date: 20221226
  Transmission Date: 20230113
  Serious: Yes (Other)
  Sender: FDA-Public Use
  Company Number: AR-SUN PHARMACEUTICAL INDUSTRIES LTD-2022R1-362517

PATIENT
  Sex: Male

DRUGS (2)
  1. ODOMZO [Suspect]
     Active Substance: SONIDEGIB
     Indication: Basal cell carcinoma
     Dosage: UNK, QD
     Route: 048
     Dates: start: 20221018, end: 20221021
  2. ODOMZO [Suspect]
     Active Substance: SONIDEGIB
     Dosage: UNK, QD
     Route: 048
     Dates: start: 20221028

REACTIONS (2)
  - Purulence [Unknown]
  - Skin haemorrhage [Unknown]

NARRATIVE: CASE EVENT DATE: 20221018
